FAERS Safety Report 11606833 (Version 1)
Quarter: 2015Q4

REPORT INFORMATION
  Report Type: Spontaneous
  Country: US (occurrence: US)
  Receive Date: 20151007
  Receipt Date: 20151007
  Transmission Date: 20160304
  Serious: No
  Sender: FDA-Public Use
  Company Number: US-GLAXOSMITHKLINE-US2015GSK142378

PATIENT
  Sex: Female

DRUGS (1)
  1. VOTRIENT [Suspect]
     Active Substance: PAZOPANIB HYDROCHLORIDE
     Indication: NEOPLASM MALIGNANT
     Dosage: 200 MG, U
     Route: 048
     Dates: start: 20150316, end: 20151001

REACTIONS (9)
  - Tremor [Unknown]
  - Gait disturbance [Unknown]
  - Nail disorder [Unknown]
  - Aphonia [Unknown]
  - Diarrhoea [Unknown]
  - Fatigue [Unknown]
  - Feeling abnormal [Unknown]
  - Dyspnoea [Unknown]
  - Hair colour changes [Unknown]
